FAERS Safety Report 24178686 (Version 1)
Quarter: 2024Q3

REPORT INFORMATION
  Report Type: Spontaneous
  Country: TR (occurrence: TR)
  Receive Date: 20240806
  Receipt Date: 20240806
  Transmission Date: 20241017
  Serious: Yes (Death, Hospitalization, Other)
  Sender: EPIC PHARM
  Company Number: TR-EPICPHARMA-TR-2024EPCLIT00917

PATIENT
  Age: 17 Year
  Sex: Female

DRUGS (5)
  1. METFORMIN HYDROCHLORIDE [Suspect]
     Active Substance: METFORMIN HYDROCHLORIDE
     Indication: Product used for unknown indication
     Dosage: 40 TABLETS
     Route: 048
  2. FLUVOXAMINE [Suspect]
     Active Substance: FLUVOXAMINE
     Indication: Product used for unknown indication
     Dosage: 10 TABLETS
     Route: 065
  3. RISPERIDONE [Suspect]
     Active Substance: RISPERIDONE
     Indication: Product used for unknown indication
     Dosage: 5 TABLETS
     Route: 065
  4. SERTRALINE [Suspect]
     Active Substance: SERTRALINE HYDROCHLORIDE
     Indication: Product used for unknown indication
     Dosage: 10 TABLETS
     Route: 065
  5. FLUOXETINE [Suspect]
     Active Substance: FLUOXETINE HYDROCHLORIDE
     Indication: Product used for unknown indication
     Dosage: 8 TABLETS
     Route: 065

REACTIONS (7)
  - Metabolic acidosis [Fatal]
  - Bundle branch block right [Unknown]
  - Electrocardiogram QRS complex prolonged [Unknown]
  - Brugada syndrome [Unknown]
  - Lethargy [Unknown]
  - Lactic acidosis [Fatal]
  - Intentional overdose [Unknown]
